FAERS Safety Report 24878854 (Version 1)
Quarter: 2025Q1

REPORT INFORMATION
  Report Type: Report from Study
  Country: US (occurrence: US)
  Receive Date: 20250123
  Receipt Date: 20250123
  Transmission Date: 20250409
  Serious: Yes (Hospitalization, Other)
  Sender: PFIZER
  Company Number: US-PFIZER INC-202500013182

PATIENT
  Age: 77 Year
  Sex: Male

DRUGS (1)
  1. VYNDAMAX [Suspect]
     Active Substance: TAFAMIDIS
     Dosage: 61 MG, DAILY (TAKE 1 CAPSULE (61 MG TOTAL) BY MOUTH DAILY)
     Route: 048
     Dates: start: 20230929

REACTIONS (1)
  - Heart valve replacement [Recovering/Resolving]
